FAERS Safety Report 15231021 (Version 1)
Quarter: 2018Q3

REPORT INFORMATION
  Report Type: Spontaneous
  Country: US (occurrence: US)
  Receive Date: 20180802
  Receipt Date: 20180802
  Transmission Date: 20181010
  Serious: Yes (Other)
  Sender: FDA-Public Use
  Company Number: US-ACCORD-064573

PATIENT
  Age: 47 Year
  Sex: Female

DRUGS (6)
  1. ALOXI [Concomitant]
     Active Substance: PALONOSETRON HYDROCHLORIDE
     Route: 042
  2. CYTOXAN [Concomitant]
     Active Substance: CYCLOPHOSPHAMIDE
     Dosage: STRENGTH: 100 MG
     Route: 042
  3. ARIMIDEX [Concomitant]
     Active Substance: ANASTROZOLE
     Dosage: STRENGTH: 1 MG
     Route: 048
  4. DECADRON [Concomitant]
     Active Substance: DEXAMETHASONE
     Dosage: STRENGTH: 1 MG
     Route: 042
  5. DOCETAXEL ACCORD [Suspect]
     Active Substance: DOCETAXEL
     Indication: BREAST CANCER
     Dates: start: 20130309, end: 20130703
  6. DOXORUBICIN [Concomitant]
     Active Substance: DOXORUBICIN
     Dosage: STRENGTH: 10 MG
     Route: 042

REACTIONS (1)
  - Alopecia [Not Recovered/Not Resolved]
